FAERS Safety Report 6141107-0 (Version None)
Quarter: 2009Q2

REPORT INFORMATION
  Report Type: 
  Country: None (occurrence: None)
  Receive Date: 20090402
  Receipt Date: 20090330
  Transmission Date: 20091009
  Serious: Yes (Life-Threatening, Other)
  Sender: FDA-Public Use
  Company Number: PHHY2009DE11813

PATIENT
  Age: 64 Year
  Sex: Female

DRUGS (8)
  1. CYCLOSPORINE [Suspect]
     Indication: STEM CELL TRANSPLANT
  2. MYCOPHENOLATE MOFETIL [Concomitant]
     Indication: STEM CELL TRANSPLANT
  3. MYCOPHENOLATE MOFETIL [Concomitant]
     Indication: IMMUNOSUPPRESSION
  4. FLUDARABINE PHOSPHATE [Concomitant]
     Indication: STEM CELL TRANSPLANT
     Dosage: 30 MG/M2 ON DAYS 7 TO 4; TOTAL DOSE:120MG/M2
  5. CYCLOPHOSPHAMIDE [Concomitant]
     Dosage: 30 MG/KG ON DAYS 5 AND 4; TOTAL DOSE:60MG/KG
  6. IRRADIATION [Concomitant]
  7. ACYCLOVIR [Concomitant]
     Indication: PROPHYLAXIS
  8. ACYCLOVIR [Concomitant]
     Indication: CYTOMEGALOVIRUS ANTIBODY POSITIVE

REACTIONS (18)
  - ABDOMINAL PAIN UPPER [None]
  - ASCITES [None]
  - BLOOD BILIRUBIN INCREASED [None]
  - CATHETER RELATED INFECTION [None]
  - DIALYSIS [None]
  - FEBRILE NEUTROPENIA [None]
  - FLUID RETENTION [None]
  - GASTROINTESTINAL HAEMORRHAGE [None]
  - HEPATIC ENZYME INCREASED [None]
  - HEPATOMEGALY [None]
  - MECHANICAL VENTILATION [None]
  - MULTI-ORGAN FAILURE [None]
  - NERVOUS SYSTEM DISORDER [None]
  - RENAL FAILURE [None]
  - RESPIRATORY FAILURE [None]
  - THROMBOCYTOPENIA [None]
  - VENOOCCLUSIVE LIVER DISEASE [None]
  - WEIGHT INCREASED [None]
